FAERS Safety Report 15920466 (Version 4)
Quarter: 2023Q2

REPORT INFORMATION
  Report Type: Spontaneous
  Country: US (occurrence: None)
  Receive Date: 20190205
  Receipt Date: 20230623
  Transmission Date: 20230722
  Serious: Yes (Death, Other)
  Sender: FDA-Public Use
  Company Number: 2018SF00442

PATIENT
  Age: 23950 Day
  Sex: Male

DRUGS (29)
  1. NEXIUM [Suspect]
     Active Substance: ESOMEPRAZOLE MAGNESIUM
     Indication: Gastrooesophageal reflux disease
     Route: 048
     Dates: start: 19970101
  2. NEXIUM [Suspect]
     Active Substance: ESOMEPRAZOLE MAGNESIUM
     Indication: Gastrooesophageal reflux disease
     Route: 048
     Dates: start: 2005, end: 2015
  3. PRILOSEC [Suspect]
     Active Substance: OMEPRAZOLE MAGNESIUM
     Indication: Gastrooesophageal reflux disease
     Route: 048
     Dates: start: 19970101
  4. PRILOSEC [Suspect]
     Active Substance: OMEPRAZOLE MAGNESIUM
     Indication: Gastrooesophageal reflux disease
     Route: 048
     Dates: start: 2005, end: 2015
  5. PRILOSEC [Suspect]
     Active Substance: OMEPRAZOLE MAGNESIUM
     Indication: Gastrooesophageal reflux disease
     Dosage: GENERIC
     Route: 065
     Dates: start: 19970101, end: 20150306
  6. PREVACID [Suspect]
     Active Substance: LANSOPRAZOLE
     Indication: Gastrooesophageal reflux disease
     Route: 065
     Dates: start: 19970101
  7. PREVACID [Suspect]
     Active Substance: LANSOPRAZOLE
     Indication: Gastrooesophageal reflux disease
     Route: 065
     Dates: start: 2005, end: 2015
  8. PREVACID [Suspect]
     Active Substance: LANSOPRAZOLE
     Indication: Gastrooesophageal reflux disease
     Dosage: GENERIC
     Route: 065
     Dates: start: 20100407, end: 20150201
  9. PROTONIX [Suspect]
     Active Substance: PANTOPRAZOLE SODIUM
     Indication: Gastrooesophageal reflux disease
     Route: 065
     Dates: start: 19970101
  10. PROTONIX [Suspect]
     Active Substance: PANTOPRAZOLE SODIUM
     Indication: Gastrooesophageal reflux disease
     Route: 065
     Dates: start: 2005, end: 2015
  11. PROTONIX [Suspect]
     Active Substance: PANTOPRAZOLE SODIUM
     Indication: Gastrooesophageal reflux disease
     Route: 065
     Dates: start: 20150209
  12. PROTONIX [Suspect]
     Active Substance: PANTOPRAZOLE SODIUM
     Indication: Gastrooesophageal reflux disease
     Dosage: GENERIC
     Route: 065
     Dates: start: 20101218, end: 20140423
  13. PROTONIX [Suspect]
     Active Substance: PANTOPRAZOLE SODIUM
     Indication: Gastrooesophageal reflux disease
     Dosage: GENERIC
     Route: 065
     Dates: start: 20150306
  14. PROTONIX [Suspect]
     Active Substance: PANTOPRAZOLE SODIUM
     Indication: Gastrooesophageal reflux disease
     Route: 065
     Dates: start: 20100407, end: 20120609
  15. LORAZEPAM [Concomitant]
     Active Substance: LORAZEPAM
  16. LAMOTRIGINE [Concomitant]
     Active Substance: LAMOTRIGINE
  17. ASPIRIN [Concomitant]
     Active Substance: ASPIRIN
     Indication: Pyrexia
     Dates: start: 20150209
  18. BUPROPION [Concomitant]
     Active Substance: BUPROPION
     Indication: Depression
     Dates: start: 20150210
  19. FUROSEMIDE [Concomitant]
     Active Substance: FUROSEMIDE
  20. FLUTICASONE [Concomitant]
     Active Substance: FLUTICASONE
  21. TAMSULOSIN [Concomitant]
     Active Substance: TAMSULOSIN
  22. RANOLAZINE [Concomitant]
     Active Substance: RANOLAZINE
     Indication: Chest pain
  23. PLAVIX [Concomitant]
     Active Substance: CLOPIDOGREL BISULFATE
  24. PAXIL [Concomitant]
     Active Substance: PAROXETINE HYDROCHLORIDE
  25. ATORVASTATIN [Concomitant]
     Active Substance: ATORVASTATIN
     Indication: Blood cholesterol increased
     Dates: start: 20150210
  26. DIGOXIN [Concomitant]
     Active Substance: DIGOXIN
     Indication: Cardiac failure
     Dates: start: 20150210
  27. ACETAMINOPHEN [Concomitant]
     Active Substance: ACETAMINOPHEN
     Indication: Pain
     Dates: start: 20150209
  28. PEPCID [Concomitant]
     Active Substance: FAMOTIDINE
  29. TUMS [Concomitant]
     Active Substance: CALCIUM CARBONATE

REACTIONS (5)
  - Cardiac failure congestive [Fatal]
  - Ischaemic cardiomyopathy [Fatal]
  - Chronic kidney disease [Unknown]
  - Acute kidney injury [Unknown]
  - Renal injury [Unknown]

NARRATIVE: CASE EVENT DATE: 20100309
